FAERS Safety Report 6683170-4 (Version None)
Quarter: 2010Q2

REPORT INFORMATION
  Report Type: 
  Country: None (occurrence: None)
  Receive Date: 20100413
  Receipt Date: 20100331
  Transmission Date: 20101027
  Serious: Yes (Hospitalization)
  Sender: FDA-Public Use
  Company Number: 009513

PATIENT
  Sex: Female
  Weight: 93 kg

DRUGS (10)
  1. CERTOLIZUMAB PEGOL (CERTOLIZUMAB PEGOL) [Suspect]
     Indication: RHEUMATOID ARTHRITIS
     Dosage: (400 MG 1X/2 WEEKS SUBCUTANEOUS), (200 MG 1X/2 WEEKS SUBCUTANEOUS)
     Route: 058
     Dates: start: 20050913, end: 20071119
  2. CERTOLIZUMAB PEGOL (CERTOLIZUMAB PEGOL) [Suspect]
     Indication: RHEUMATOID ARTHRITIS
     Dosage: (400 MG 1X/2 WEEKS SUBCUTANEOUS), (200 MG 1X/2 WEEKS SUBCUTANEOUS)
     Route: 058
     Dates: start: 20071203, end: 20100323
  3. METHOTREXATE [Concomitant]
  4. FOLIC ACID [Concomitant]
  5. MELOXICAM [Concomitant]
  6. METHYLPREDNISOLON /00049601/ [Concomitant]
  7. CALCIUM [Concomitant]
  8. COLECALCIFEROL [Concomitant]
  9. TEARS NATURALE [Concomitant]
  10. BETALOC ZOK [Concomitant]

REACTIONS (6)
  - CERVICITIS [None]
  - EXTRASYSTOLES [None]
  - HYPERTENSION [None]
  - INFLUENZA [None]
  - KERATITIS [None]
  - OSTEOARTHRITIS [None]
